FAERS Safety Report 11379111 (Version 1)
Quarter: 2015Q3

REPORT INFORMATION
  Report Type: Spontaneous
  Country: US (occurrence: None)
  Receive Date: 20150813
  Receipt Date: 20150813
  Transmission Date: 20151125
  Serious: Yes (Other)
  Sender: FDA-Public Use
  Company Number: None

PATIENT
  Age: 31 Year
  Sex: Male
  Weight: 78.02 kg

DRUGS (1)
  1. LISTERINE TOTAL CARE ZERO FRESH MINT [Suspect]
     Active Substance: SODIUM FLUORIDE
     Indication: DENTAL CARE
     Dates: start: 20150805, end: 20150812

REACTIONS (4)
  - Oral pain [None]
  - Oral mucosal exfoliation [None]
  - Ageusia [None]
  - Stomatitis [None]

NARRATIVE: CASE EVENT DATE: 20150812
